FAERS Safety Report 9130043 (Version 2)
Quarter: 2013Q1

REPORT INFORMATION
  Report Type: Report from Study
  Country: JP (occurrence: JP)
  Receive Date: 20130228
  Receipt Date: 20130315
  Transmission Date: 20140127
  Serious: Yes (Hospitalization)
  Sender: FDA-Public Use
  Company Number: JP-GILEAD-2013-0070642

PATIENT
  Age: 69 Year
  Sex: Female

DRUGS (13)
  1. AMBRISENTAN [Suspect]
     Indication: COLLAGEN DISORDER
     Dosage: 5 MG, UNK
     Route: 048
     Dates: start: 20120424, end: 20120517
  2. AMBRISENTAN [Suspect]
     Dosage: 2.5 MG, UNK
     Route: 048
     Dates: start: 20110322, end: 20110322
  3. AMBRISENTAN [Suspect]
     Dosage: 2.5 MG, UNK
     Route: 048
     Dates: start: 20110323, end: 20120423
  4. REVATIO [Concomitant]
     Indication: COLLAGEN DISORDER
     Route: 048
     Dates: end: 20120517
  5. BERAPROST SODIUM [Concomitant]
     Indication: COLLAGEN DISORDER
     Route: 048
     Dates: start: 20110330, end: 20120517
  6. SPIRIVA [Concomitant]
     Route: 055
     Dates: end: 20120424
  7. FUROSEMIDE [Concomitant]
     Route: 048
     Dates: end: 20120517
  8. ALDACTONE A [Concomitant]
     Route: 048
     Dates: end: 20120517
  9. WARFARIN SODIUM [Concomitant]
  10. DALTEPARIN SODIUM [Concomitant]
  11. WARFARIN [Concomitant]
     Indication: THROMBOSIS PROPHYLAXIS
     Route: 048
     Dates: end: 20120517
  12. PROCYLIN [Concomitant]
     Indication: COLLAGEN DISORDER
     Route: 048
     Dates: end: 20110329
  13. HEPACHRON [Concomitant]
     Indication: THROMBOSIS PROPHYLAXIS
     Route: 042
     Dates: end: 20110319

REACTIONS (1)
  - Interstitial lung disease [Not Recovered/Not Resolved]
